FAERS Safety Report 19636544 (Version 2)
Quarter: 2021Q3

REPORT INFORMATION
  Report Type: Spontaneous
  Country: US (occurrence: US)
  Receive Date: 20210729
  Receipt Date: 20210805
  Transmission Date: 20211014
  Serious: Yes (Life-Threatening, Hospitalization, Other)
  Sender: FDA-Public Use
  Company Number: US-TEVA-2021-US-1935803

PATIENT
  Age: 75 Year
  Sex: Female

DRUGS (2)
  1. HYDRALAZINE [Suspect]
     Active Substance: HYDRALAZINE HYDROCHLORIDE
     Indication: HYPERTENSION
  2. HYDRALAZINE [Suspect]
     Active Substance: HYDRALAZINE HYDROCHLORIDE
     Indication: CHRONIC KIDNEY DISEASE

REACTIONS (5)
  - Antineutrophil cytoplasmic antibody [Unknown]
  - Anuria [Unknown]
  - Pulmonary haemorrhage [Unknown]
  - Vasculitis [Unknown]
  - End stage renal disease [Unknown]
